FAERS Safety Report 9454425 (Version 1)
Quarter: 2013Q3

REPORT INFORMATION
  Report Type: Report from Study
  Country: US (occurrence: US)
  Receive Date: 20130812
  Receipt Date: 20130812
  Transmission Date: 20140515
  Serious: Yes (Other)
  Sender: FDA-Public Use
  Company Number: US-BAYER-2013-095839

PATIENT
  Sex: Female

DRUGS (1)
  1. MIRENA [Suspect]
     Dosage: 20 MCG/24HR, CONT
     Route: 015

REACTIONS (7)
  - Bipolar I disorder [None]
  - Feeling abnormal [None]
  - Negative thoughts [None]
  - Attention deficit/hyperactivity disorder [None]
  - Disturbance in attention [None]
  - Obsessive-compulsive disorder [None]
  - Anxiety [None]
